FAERS Safety Report 23128182 (Version 3)
Quarter: 2024Q1

REPORT INFORMATION
  Report Type: Spontaneous
  Country: PT (occurrence: PT)
  Receive Date: 20231031
  Receipt Date: 20240112
  Transmission Date: 20240410
  Serious: Yes (Other)
  Sender: FDA-Public Use
  Company Number: PT-MLMSERVICE-20231020-4614866-1

PATIENT
  Age: 57 Year
  Sex: Female

DRUGS (1)
  1. METAMIZOLE [Suspect]
     Active Substance: METAMIZOLE
     Indication: Product used for unknown indication
     Dosage: 575 MG
     Route: 065

REACTIONS (2)
  - Fixed eruption [Unknown]
  - Dermatitis bullous [Unknown]
